FAERS Safety Report 5637831-6 (Version None)
Quarter: 2008Q1

REPORT INFORMATION
  Report Type: 
  Country: None (occurrence: None)
  Receive Date: 20080221
  Receipt Date: 20080213
  Transmission Date: 20080703
  Serious: Yes (Other)
  Sender: FDA-Public Use
  Company Number: 2008000377

PATIENT
  Age: 70 Year
  Sex: Male
  Weight: 101.6057 kg

DRUGS (5)
  1. LUBRIDERM DAILY MOISTURE (NO ACTIVE INGREDIENT) [Suspect]
     Indication: DRY SKIN
     Dosage: 3-4 TIMES DAILY, TOPICAL
     Route: 061
     Dates: start: 20071231, end: 20071231
  2. DIOVAN [Concomitant]
  3. ATENOLOL [Concomitant]
  4. ZOCOR [Concomitant]
  5. HYDROCHLOROTHIAZIDE [Concomitant]

REACTIONS (6)
  - APPLICATION SITE ERYTHEMA [None]
  - APPLICATION SITE PRURITUS [None]
  - APPLICATION SITE SWELLING [None]
  - APPLICATION SITE VESICLES [None]
  - APPLICATION SITE WARMTH [None]
  - SLEEP DISORDER [None]
